FAERS Safety Report 20141789 (Version 2)
Quarter: 2022Q1

REPORT INFORMATION
  Report Type: Spontaneous
  Country: PL (occurrence: PL)
  Receive Date: 20211202
  Receipt Date: 20220120
  Transmission Date: 20220423
  Serious: Yes (Hospitalization, Other)
  Sender: FDA-Public Use
  Company Number: None

PATIENT
  Age: 31 Year
  Sex: Male

DRUGS (18)
  1. OMEPRAZOLE [Interacting]
     Active Substance: OMEPRAZOLE
     Indication: Product used for unknown indication
     Dosage: 20 MG, BID (40 MG PER DAY)
  2. METHYLPREDNISOLONE [Interacting]
     Active Substance: METHYLPREDNISOLONE
     Dosage: 8 MG, BID
  3. AMOXICILLIN\CLAVULANIC ACID [Interacting]
     Active Substance: AMOXICILLIN\CLAVULANIC ACID
     Dosage: 1000 MG, BID
  4. DEXTROMETHORPHAN HYDROBROMIDE [Interacting]
     Active Substance: DEXTROMETHORPHAN HYDROBROMIDE
     Indication: Cough
     Dosage: 30 MG, TID
     Route: 048
  5. DEXTROMETHORPHAN HYDROBROMIDE [Interacting]
     Active Substance: DEXTROMETHORPHAN HYDROBROMIDE
     Indication: Antitussive therapy
  6. AMLODIPINE\PERINDOPRIL [Interacting]
     Active Substance: AMLODIPINE\PERINDOPRIL
     Indication: Insomnia
     Dosage: 10 MG OF PERINDOPRIL AND 10 MG OF AMLODIPINE
  7. AMLODIPINE\PERINDOPRIL [Interacting]
     Active Substance: AMLODIPINE\PERINDOPRIL
     Indication: Affective disorder
  8. AMLODIPINE\PERINDOPRIL [Interacting]
     Active Substance: AMLODIPINE\PERINDOPRIL
     Indication: Hypertension
  9. CODEINE PHOSPHATE\SULFOGAIACOL [Interacting]
     Active Substance: CODEINE PHOSPHATE\SULFOGAIACOL
     Dosage: 3 X 1 TABLET; 1 DF = 1 TABLET
  10. ESCITALOPRAM OXALATE [Interacting]
     Active Substance: ESCITALOPRAM OXALATE
     Indication: Depression
     Dosage: 10 MG
  11. CLARITHROMYCIN [Interacting]
     Active Substance: CLARITHROMYCIN
     Indication: Cough
     Dosage: 500 MG, BID
     Route: 048
  12. CLARITHROMYCIN [Interacting]
     Active Substance: CLARITHROMYCIN
     Dosage: 500 MG, BID
     Route: 048
  13. VORTIOXETINE [Concomitant]
     Active Substance: VORTIOXETINE
     Indication: Depression
     Dosage: UNK
  14. VORTIOXETINE [Concomitant]
     Active Substance: VORTIOXETINE
     Dosage: UNK
  15. VORTIOXETINE [Concomitant]
     Active Substance: VORTIOXETINE
     Dosage: UNK
  16. VALSARTAN [Concomitant]
     Active Substance: VALSARTAN
     Indication: Hypertension
     Dosage: UNK
  17. VALSARTAN [Concomitant]
     Active Substance: VALSARTAN
     Dosage: UNK
  18. VALSARTAN [Concomitant]
     Active Substance: VALSARTAN
     Dosage: UNK

REACTIONS (22)
  - Hyperhidrosis [Unknown]
  - Cough [Recovered/Resolved]
  - Drug interaction [Recovered/Resolved]
  - Sleep disorder [Unknown]
  - Drug interaction [Recovered/Resolved]
  - Cough [Recovered/Resolved]
  - Condition aggravated [Unknown]
  - Irritability [Unknown]
  - Cough [Recovered/Resolved]
  - Drug interaction [Recovered/Resolved]
  - Contraindicated product administered [Unknown]
  - Cough [Recovered/Resolved]
  - Poor quality sleep [Unknown]
  - Cough [Recovered/Resolved]
  - Joint swelling [Recovered/Resolved]
  - Constipation [Unknown]
  - Condition aggravated [Unknown]
  - Hyperhidrosis [Recovered/Resolved]
  - Serotonin syndrome [Recovered/Resolved]
  - General physical health deterioration [Unknown]
  - Drug level increased [Unknown]
  - Irritability [Unknown]
